FAERS Safety Report 17401464 (Version 1)
Quarter: 2020Q1

REPORT INFORMATION
  Report Type: Spontaneous
  Country: GB (occurrence: GB)
  Receive Date: 20200211
  Receipt Date: 20200211
  Transmission Date: 20200409
  Serious: Yes (Hospitalization)
  Sender: FDA-Public Use
  Company Number: GB-ENDO PHARMACEUTICALS INC-2020-000994

PATIENT
  Age: 34 Year
  Sex: Female
  Weight: 62 kg

DRUGS (10)
  1. AMOXICILLIN. [Concomitant]
     Active Substance: AMOXICILLIN
     Indication: PRODUCT USED FOR UNKNOWN INDICATION
     Dosage: 1.2 G, UNKNOWN
     Route: 042
  2. VASOSTRICT [Suspect]
     Active Substance: VASOPRESSIN
     Indication: VASOCONSTRICTION
     Dosage: 20 IU, UNKNOWN
     Route: 050
  3. PROPOFOL. [Concomitant]
     Active Substance: PROPOFOL
     Indication: GENERAL ANAESTHESIA
     Dosage: 200 MG, UNKNOWN
     Route: 042
  4. DIAMORPHINE [Concomitant]
     Active Substance: DIAMORPHINE
     Indication: ANAESTHESIA PROCEDURE
     Dosage: 750 UNKNOWN, UNKNOWN
     Route: 050
  5. TRANEXAMIC ACID. [Concomitant]
     Active Substance: TRANEXAMIC ACID
     Indication: PRODUCT USED FOR UNKNOWN INDICATION
     Dosage: 1 G, UNKNOWN
     Route: 042
  6. ATRACURIUM [Concomitant]
     Active Substance: ATRACURIUM
     Indication: GENERAL ANAESTHESIA
     Dosage: 35 MG, UNKNOWN
     Route: 042
  7. DESFLURANE. [Concomitant]
     Active Substance: DESFLURANE
     Indication: ANAESTHESIA PROCEDURE
     Dosage: UNK UNKNOWN, UNKNOWN
     Route: 065
  8. PARACETAMOL [Concomitant]
     Active Substance: ACETAMINOPHEN
     Indication: PRODUCT USED FOR UNKNOWN INDICATION
     Dosage: 1 G, UNKNOWN
     Route: 042
  9. ONDANSETRON [Concomitant]
     Active Substance: ONDANSETRON
     Indication: PRODUCT USED FOR UNKNOWN INDICATION
     Dosage: 4 MG, UNKNOWN
     Route: 042
  10. BUPIVACAINE. [Concomitant]
     Active Substance: BUPIVACAINE
     Indication: ANAESTHESIA PROCEDURE
     Dosage: 2 ML, UNKNOWN
     Route: 050

REACTIONS (3)
  - Acute pulmonary oedema [Recovered/Resolved]
  - Arteriospasm coronary [Recovered/Resolved]
  - Off label use [Recovered/Resolved]
